FAERS Safety Report 14331213 (Version 1)
Quarter: 2017Q4

REPORT INFORMATION
  Report Type: Spontaneous
  Country: DK (occurrence: DK)
  Receive Date: 20171228
  Receipt Date: 20171228
  Transmission Date: 20180321
  Serious: Yes (Hospitalization, Other)
  Sender: FDA-Public Use
  Company Number: DK-B.I. PHARMACEUTICALS,INC./RIDGEFIELD-2017-12-000269

PATIENT
  Age: 70 Year
  Sex: Male

DRUGS (3)
  1. PRADAXA [Suspect]
     Active Substance: DABIGATRAN ETEXILATE MESYLATE
     Indication: ATRIAL FIBRILLATION
     Dosage: STYRKE: 150 MG
     Route: 048
     Dates: start: 20171026, end: 20171126
  2. PARACETAMOL [Concomitant]
     Active Substance: ACETAMINOPHEN
     Indication: PAIN
     Dosage: DOSIS: H?JST 2 TABLETTER 4 GANGE DAGLIGT, STYRKE: 500 MG; AS REQUIRED
     Route: 048
     Dates: start: 20170612
  3. ROSUVASTATIN. [Concomitant]
     Active Substance: ROSUVASTATIN
     Indication: HYPERCHOLESTEROLAEMIA
     Dosage: STYRKE: 5 MG
     Route: 048
     Dates: start: 20170612

REACTIONS (7)
  - Cerebral infarction [Unknown]
  - Hemiparesis [Unknown]
  - Speech disorder [Unknown]
  - Hemianopia homonymous [Unknown]
  - Cognitive disorder [Unknown]
  - Cerebrovascular accident [Unknown]
  - Dysarthria [Unknown]

NARRATIVE: CASE EVENT DATE: 20171126
